FAERS Safety Report 6169967-8 (Version None)
Quarter: 2009Q2

REPORT INFORMATION
  Report Type: 
  Country: None (occurrence: None)
  Receive Date: 20090428
  Receipt Date: 20090422
  Transmission Date: 20091009
  Serious: Yes (Other)
  Sender: FDA-Public Use
  Company Number: JP-JNJFOC-20090306135

PATIENT
  Age: 75 Year
  Sex: Male

DRUGS (5)
  1. KETOCONAZOLE [Suspect]
     Indication: SCEDOSPORIUM INFECTION
     Route: 061
  2. ITRACONAZOLE [Suspect]
     Route: 048
  3. ITRACONAZOLE [Suspect]
     Indication: SCEDOSPORIUM INFECTION
     Route: 048
  4. NEORAL [Concomitant]
     Indication: NEPHROTIC SYNDROME
     Route: 065
  5. CORTICOSTEROIDS [Concomitant]
     Indication: NEPHROTIC SYNDROME
     Dosage: 10-15 MG/DAY
     Route: 065

REACTIONS (3)
  - DRUG INEFFECTIVE [None]
  - PANCYTOPENIA [None]
  - RENAL IMPAIRMENT [None]
